FAERS Safety Report 23921021 (Version 1)
Quarter: 2024Q2

REPORT INFORMATION
  Report Type: Spontaneous
  Country: PT (occurrence: PT)
  Receive Date: 20240530
  Receipt Date: 20240530
  Transmission Date: 20240715
  Serious: Yes (Other)
  Sender: FDA-Public Use
  Company Number: PT-BAUSCH-BL-2024-008177

PATIENT
  Age: 67 Year
  Sex: Female

DRUGS (3)
  1. ALBUTEROL [Suspect]
     Active Substance: ALBUTEROL
     Indication: COVID-19 pneumonia
     Dosage: INHALATION
     Route: 055
  2. ALBUTEROL [Suspect]
     Active Substance: ALBUTEROL
     Indication: Bacterial infection
  3. ALBUTEROL [Suspect]
     Active Substance: ALBUTEROL
     Indication: Respiratory tract infection

REACTIONS (1)
  - Lactic acidosis [Recovered/Resolved]
